FAERS Safety Report 15279894 (Version 1)
Quarter: 2018Q3

REPORT INFORMATION
  Report Type: Spontaneous
  Country: US (occurrence: US)
  Receive Date: 20180815
  Receipt Date: 20180815
  Transmission Date: 20181010
  Serious: Yes (Disabling, Other)
  Sender: FDA-Public Use
  Company Number: US-REGENERON PHARMACEUTICALS, INC.-2018-33132

PATIENT

DRUGS (3)
  1. EYLEA [Suspect]
     Active Substance: AFLIBERCEPT
     Indication: DIABETIC RETINAL OEDEMA
     Dosage: 2MG (0.5ML) RIGHT EYE
     Route: 031
     Dates: start: 201612
  2. EYLEA [Suspect]
     Active Substance: AFLIBERCEPT
     Dosage: 2MG (0.5ML) LEFT EYE; MOST RECENT
     Route: 031
     Dates: start: 20180731, end: 20180731
  3. EYLEA [Suspect]
     Active Substance: AFLIBERCEPT
     Dosage: 2MG (0.5ML) LEFT EYE
     Route: 031
     Dates: start: 201702

REACTIONS (2)
  - Blindness unilateral [Unknown]
  - Non-infectious endophthalmitis [Unknown]

NARRATIVE: CASE EVENT DATE: 20180803
